FAERS Safety Report 26068398 (Version 1)
Quarter: 2025Q4

REPORT INFORMATION
  Report Type: Spontaneous
  Country: PS (occurrence: PS)
  Receive Date: 20251120
  Receipt Date: 20251120
  Transmission Date: 20260117
  Serious: Yes (Death, Hospitalization, Other)
  Sender: NEXUS PHARMACEUTICALS
  Company Number: PS-Nexus Pharma-000526

PATIENT
  Age: 18 Year
  Sex: Female

DRUGS (1)
  1. CYCLOPHOSPHAMIDE [Suspect]
     Active Substance: CYCLOPHOSPHAMIDE
     Indication: Glomerulonephritis

REACTIONS (8)
  - Disseminated intravascular coagulation [Fatal]
  - Cytomegalovirus colitis [Fatal]
  - Acute hepatic failure [Fatal]
  - Pancreatitis acute [Fatal]
  - Pneumonitis [Fatal]
  - Disseminated cytomegaloviral infection [Fatal]
  - Sepsis [Fatal]
  - Multiple organ dysfunction syndrome [Fatal]
